FAERS Safety Report 7479749-2 (Version None)
Quarter: 2011Q2

REPORT INFORMATION
  Report Type: 
  Country: None (occurrence: None)
  Receive Date: 20110513
  Receipt Date: 20110429
  Transmission Date: 20111010
  Serious: Yes (Hospitalization, Other)
  Sender: FDA-Public Use
  Company Number: CA-GENENTECH-308501

PATIENT
  Sex: Male

DRUGS (5)
  1. UNIPHYL [Concomitant]
     Indication: PRODUCT USED FOR UNKNOWN INDICATION
  2. XOLAIR [Suspect]
     Indication: ASTHMA
     Dosage: 375 MG, Q2W
     Route: 058
     Dates: start: 20091211
  3. ANTIBIOTICS (NOT SPECIFIED) [Concomitant]
     Indication: PRODUCT USED FOR UNKNOWN INDICATION
  4. LYRICA [Concomitant]
     Indication: PRODUCT USED FOR UNKNOWN INDICATION
  5. CORTISONE [Concomitant]
     Indication: PRODUCT USED FOR UNKNOWN INDICATION
     Dosage: UNK
     Dates: start: 20101008

REACTIONS (13)
  - FACE OEDEMA [None]
  - NAUSEA [None]
  - DIZZINESS [None]
  - BODY TEMPERATURE INCREASED [None]
  - LUNG DISORDER [None]
  - NASOPHARYNGITIS [None]
  - DYSPNOEA [None]
  - BRONCHITIS [None]
  - JOINT SWELLING [None]
  - GAIT DISTURBANCE [None]
  - OEDEMA PERIPHERAL [None]
  - HYPERTENSION [None]
  - CARDIAC FAILURE [None]
